FAERS Safety Report 9310923 (Version 1)
Quarter: 2013Q2

REPORT INFORMATION
  Report Type: Spontaneous
  Country: NZ (occurrence: NZ)
  Receive Date: 20130528
  Receipt Date: 20130528
  Transmission Date: 20140414
  Serious: Yes (Hospitalization)
  Sender: FDA-Public Use
  Company Number: NZ-BAYER-2013-060365

PATIENT
  Sex: Male

DRUGS (1)
  1. CIPROXIN 500 MG FILM-COATED TABLETS [Suspect]
     Dosage: UNK
     Dates: start: 2000

REACTIONS (9)
  - Rash [None]
  - Pyrexia [None]
  - Lung infiltration [None]
  - Myalgia [None]
  - Muscle swelling [None]
  - Myofascial pain syndrome [None]
  - Swelling [None]
  - Hepatic enzyme increased [None]
  - Chronic fatigue syndrome [None]
